FAERS Safety Report 9711531 (Version 1)
Quarter: 2013Q4

REPORT INFORMATION
  Report Type: Spontaneous
  Country: US (occurrence: US)
  Receive Date: 20131126
  Receipt Date: 20131126
  Transmission Date: 20140711
  Serious: No
  Sender: FDA-Public Use
  Company Number: US-BRISTOL-MYERS SQUIBB COMPANY-19070127

PATIENT
  Age: 32 Year
  Sex: Male
  Weight: 131.52 kg

DRUGS (4)
  1. BYDUREON 2MG SUSPENSION [Suspect]
     Indication: TYPE 2 DIABETES MELLITUS
     Dosage: DURATION-2-3 MONTHS AGO
  2. GLIMEPIRIDE [Suspect]
  3. LIPITOR [Concomitant]
  4. TRICOR [Concomitant]

REACTIONS (2)
  - Injection site swelling [Unknown]
  - Drug ineffective [Unknown]
